FAERS Safety Report 8794749 (Version 2)
Quarter: 2015Q1

REPORT INFORMATION
  Report Type: Report from Study
  Country: US (occurrence: US)
  Receive Date: 20120917
  Receipt Date: 20150330
  Transmission Date: 20150721
  Serious: Yes (Death)
  Sender: FDA-Public Use
  Company Number: US-ROCHE-1126785

PATIENT
  Age: 51 Year
  Sex: Male

DRUGS (8)
  1. BACTROBAN [Concomitant]
     Active Substance: MUPIROCIN\MUPIROCIN CALCIUM
  2. ARANESP [Concomitant]
     Active Substance: DARBEPOETIN ALFA
     Route: 058
  3. CARBOPLATIN. [Concomitant]
     Active Substance: CARBOPLATIN
  4. BACTRIM [Suspect]
     Active Substance: SULFAMETHOXAZOLE\TRIMETHOPRIM
     Indication: PRODUCT USED FOR UNKNOWN INDICATION
     Route: 065
  5. NEUMEGA [Concomitant]
     Active Substance: OPRELVEKIN
     Route: 058
  6. EMEND [Concomitant]
     Active Substance: APREPITANT
     Route: 065
  7. AVASTIN [Suspect]
     Active Substance: BEVACIZUMAB
     Indication: BRAIN NEOPLASM MALIGNANT
     Route: 042
     Dates: start: 20080508
  8. VELCADE [Concomitant]
     Active Substance: BORTEZOMIB

REACTIONS (12)
  - Skin infection [Unknown]
  - Disease progression [Unknown]
  - Hemiparesis [Unknown]
  - Rash [Recovered/Resolved]
  - Thrombocytopenia [Unknown]
  - Drug hypersensitivity [Unknown]
  - Blindness unilateral [Unknown]
  - Headache [Unknown]
  - Neutropenia [Unknown]
  - Death [Fatal]
  - Oral pain [Unknown]
  - Anaemia [Unknown]

NARRATIVE: CASE EVENT DATE: 20081107
